FAERS Safety Report 10602661 (Version 2)
Quarter: 2014Q4

REPORT INFORMATION
  Report Type: Spontaneous
  Country: AT (occurrence: AT)
  Receive Date: 20141124
  Receipt Date: 20141201
  Transmission Date: 20150529
  Serious: Yes (Hospitalization, Other)
  Sender: FDA-Public Use
  Company Number: AT-GLAXOSMITHKLINE-AT2014GSK020862

PATIENT
  Sex: Male

DRUGS (1)
  1. CUROCEF [Suspect]
     Active Substance: CEFUROXIME SODIUM
     Indication: SURGERY

REACTIONS (2)
  - Enterococcal infection [Unknown]
  - Staphylococcal infection [Unknown]
